FAERS Safety Report 18033327 (Version 1)
Quarter: 2020Q3

REPORT INFORMATION
  Report Type: Spontaneous
  Country: CA (occurrence: CA)
  Receive Date: 20200716
  Receipt Date: 20200716
  Transmission Date: 20201103
  Serious: Yes (Other)
  Sender: FDA-Public Use
  Company Number: CA-SAMSUNG BIOEPIS-SB-2020-22300

PATIENT
  Age: 41 Year
  Sex: Male

DRUGS (1)
  1. ETANERCEPT [Suspect]
     Active Substance: ETANERCEPT
     Indication: ANKYLOSING SPONDYLITIS
     Route: 058

REACTIONS (6)
  - Malaise [Unknown]
  - Neutropenia [Unknown]
  - Leukopenia [Unknown]
  - Red blood cell sedimentation rate abnormal [Unknown]
  - Palindromic rheumatism [Unknown]
  - C-reactive protein increased [Unknown]
